FAERS Safety Report 8361069-5 (Version None)
Quarter: 2012Q2

REPORT INFORMATION
  Report Type: 
  Country: None (occurrence: None)
  Receive Date: 20120515
  Receipt Date: 20120430
  Transmission Date: 20120825
  Serious: Yes (Hospitalization)
  Sender: FDA-Public Use
  Company Number: DE-ROCHE-1068629

PATIENT
  Age: 88 Year
  Sex: Female

DRUGS (4)
  1. TRIAMTERENE [Concomitant]
     Indication: HYPERTENSION
  2. TORSEMIDE [Suspect]
     Indication: HYPERTENSION
  3. METAMIZOLE [Concomitant]
     Indication: ARTHRITIS
  4. TRAMADOL HYDROCHLORIDE [Concomitant]
     Indication: ARTHRITIS

REACTIONS (2)
  - PHOTOSENSITIVITY REACTION [None]
  - KERATITIS [None]
